FAERS Safety Report 9324085 (Version 2)
Quarter: 2013Q2

REPORT INFORMATION
  Report Type: Report from Study
  Country: BE (occurrence: BE)
  Receive Date: 20130603
  Receipt Date: 20130612
  Transmission Date: 20140414
  Serious: Yes (Hospitalization)
  Sender: FDA-Public Use
  Company Number: BE-AMGEN-BELCT2013015889

PATIENT
  Age: 81 Year
  Sex: Female

DRUGS (6)
  1. ETANERCEPT [Suspect]
     Indication: RHEUMATOID ARTHRITIS
     Dosage: 50 MG, QWK
     Route: 058
     Dates: start: 20030420, end: 200904
  2. ZOCOR [Concomitant]
     Indication: DYSLIPIDAEMIA
     Dosage: UNK
     Route: 048
  3. SOTALEX [Concomitant]
     Indication: ATRIAL FIBRILLATION
     Dosage: UNK
     Route: 048
     Dates: start: 200601
  4. ASAFLOW [Concomitant]
     Indication: ATRIAL FIBRILLATION
     Dosage: UNK
     Route: 048
     Dates: start: 200601
  5. SERENASE                           /00015301/ [Concomitant]
     Dosage: UNK
     Route: 048
  6. MEDROL                             /00049601/ [Concomitant]
     Indication: RHEUMATOID ARTHRITIS
     Dosage: UNK
     Route: 048
     Dates: start: 200708

REACTIONS (1)
  - Bronchitis [Recovered/Resolved]
